FAERS Safety Report 15319068 (Version 2)
Quarter: 2018Q4

REPORT INFORMATION
  Report Type: Spontaneous
  Country: US (occurrence: US)
  Receive Date: 20180826
  Receipt Date: 20181011
  Transmission Date: 20190204
  Serious: Yes (Death, Hospitalization, Other)
  Sender: FDA-Public Use
  Company Number: US-PRINSTON PHARMACEUTICAL INC.-2018PRN00924

PATIENT
  Age: 67 Year
  Sex: Male
  Weight: 72.56 kg

DRUGS (2)
  1. UNSPECIFIED MEDICATIONS [Concomitant]
     Active Substance: UNSPECIFIED INGREDIENT
  2. VALSARTAN. [Suspect]
     Active Substance: VALSARTAN
     Indication: HYPERTENSION
     Dosage: 80 MG, 1X/DAY
     Route: 048
     Dates: start: 20180125, end: 20180325

REACTIONS (6)
  - Coronary artery occlusion [Not Recovered/Not Resolved]
  - Pyrexia [Unknown]
  - Tremor [Unknown]
  - Cardiac dysfunction [Not Recovered/Not Resolved]
  - Endocarditis [Fatal]
  - Chills [Unknown]

NARRATIVE: CASE EVENT DATE: 20180622
